FAERS Safety Report 9147001 (Version 1)
Quarter: 2013Q1

REPORT INFORMATION
  Report Type: Spontaneous
  Country: TW (occurrence: None)
  Receive Date: 20130201
  Receipt Date: 20130201
  Transmission Date: 20140127
  Serious: Yes (Death, Hospitalization)
  Sender: FDA-Public Use
  Company Number: VAL_01283_2013

PATIENT
  Age: 30 Year
  Sex: Male

DRUGS (4)
  1. CARBAMAZEPINE [Suspect]
     Indication: MOOD ALTERED
     Dosage: (200  MG  BID)?(4 DAYS UNTIL NOT CONTINUING)
  2. HALOPERIDOL [Concomitant]
  3. CLONAZEPAM [Concomitant]
  4. ZOLPIDEM [Concomitant]

REACTIONS (8)
  - Toxic epidermal necrolysis [None]
  - Sinus tachycardia [None]
  - Rhabdomyolysis [None]
  - Gastrointestinal haemorrhage [None]
  - Hypovolaemic shock [None]
  - Acute respiratory distress syndrome [None]
  - Multi-organ failure [None]
  - Renal impairment [None]
